FAERS Safety Report 4503046-8 (Version None)
Quarter: 2004Q4

REPORT INFORMATION
  Report Type: 
  Country: None (occurrence: None)
  Receive Date: 20041116
  Receipt Date: 20041116
  Transmission Date: 20050328
  Serious: Yes (Hospitalization)
  Sender: FDA-Public Use
  Company Number: None

PATIENT
  Age: 68 Year
  Sex: Male
  Weight: 167.8309 kg

DRUGS (19)
  1. METOPROLOL [Suspect]
     Indication: ATRIAL FIBRILLATION
     Dosage: 100 MG BID
     Dates: start: 20031223, end: 20040724
  2. METOPROLOL [Suspect]
     Indication: HYPERTENSION
     Dosage: 100 MG BID
     Dates: start: 20031223, end: 20040724
  3. DILTIAZEM [Suspect]
     Indication: ATRIAL FIBRILLATION
     Dosage: 360 MG DAILY
     Dates: start: 20040708, end: 20040724
  4. DILTIAZEM [Suspect]
     Indication: HYPERTENSION
     Dosage: 360 MG DAILY
     Dates: start: 20040708, end: 20040724
  5. CLINDAMYCIN HCL [Concomitant]
  6. CIPROFLOXACIN HCL [Concomitant]
  7. COUMADIN [Concomitant]
  8. SIMVASTATIN [Concomitant]
  9. CLONIDINE HCL [Concomitant]
  10. MINOXIDIL [Concomitant]
  11. FUROSEMIDE [Concomitant]
  12. SPIRONOLACTONE [Concomitant]
  13. LISINOPRIL [Concomitant]
  14. SILVER SULFADIAZINE 1% CREAM [Concomitant]
  15. GLYBURIDE [Concomitant]
  16. FERROUS SO4 [Concomitant]
  17. GAUZE PAD [Concomitant]
  18. KERLIX [Concomitant]
  19. TAPE, PAPER [Concomitant]

REACTIONS (3)
  - ASTHENIA [None]
  - BRADYCARDIA [None]
  - DIZZINESS [None]
